FAERS Safety Report 9968991 (Version 1)
Quarter: 2014Q1

REPORT INFORMATION
  Report Type: Report from Study
  Country: US (occurrence: US)
  Receive Date: 20140306
  Receipt Date: 20140306
  Transmission Date: 20141002
  Serious: No
  Sender: FDA-Public Use
  Company Number: US-ABBVIE-13P-163-1143443-00

PATIENT
  Age: 32 Year
  Sex: Male

DRUGS (8)
  1. HUMIRA [Suspect]
     Indication: CROHN^S DISEASE
     Dates: start: 201306
  2. EFFEXOR [Concomitant]
     Indication: DEPRESSION
     Dosage: 300 MG DAILY
  3. ROBINUL [Concomitant]
     Indication: HYPERHIDROSIS
     Dosage: TWICE DAILY
  4. NEXIUM [Concomitant]
     Indication: GASTROOESOPHAGEAL REFLUX DISEASE
     Dosage: 40 MG DAILY
  5. PERCOCET [Concomitant]
     Indication: BACK PAIN
     Dosage: 10/325 MG
  6. CLONAZAPAM [Concomitant]
     Indication: ANXIETY
  7. AMBIEN [Concomitant]
     Indication: INSOMNIA
     Dosage: AT BEDTIME AS NEEDED
  8. FENTANYL [Concomitant]
     Indication: BACK PAIN

REACTIONS (2)
  - Injection site pain [Not Recovered/Not Resolved]
  - Vision blurred [Not Recovered/Not Resolved]
